FAERS Safety Report 7005601-2 (Version None)
Quarter: 2010Q3

REPORT INFORMATION
  Report Type: 
  Country: None (occurrence: None)
  Receive Date: 20100921
  Receipt Date: 20100914
  Transmission Date: 20110219
  Serious: Yes (Life-Threatening, Disabling)
  Sender: FDA-Public Use
  Company Number: A0881829A

PATIENT
  Sex: Male

DRUGS (2)
  1. LOVAZA [Suspect]
     Route: 065
     Dates: start: 20081001, end: 20081001
  2. UNKNOWN [Concomitant]

REACTIONS (1)
  - HOMICIDAL IDEATION [None]
